FAERS Safety Report 19583936 (Version 2)
Quarter: 2021Q3

REPORT INFORMATION
  Report Type: Spontaneous
  Country: CA (occurrence: CA)
  Receive Date: 20210720
  Receipt Date: 20210806
  Transmission Date: 20211014
  Serious: No
  Sender: FDA-Public Use
  Company Number: CA-PFIZER INC-2021851847

PATIENT
  Age: 66 Year
  Sex: Female
  Weight: 103.4 kg

DRUGS (2)
  1. METHOTREXATE. [Concomitant]
     Active Substance: METHOTREXATE
     Dosage: UNK
  2. RUXIENCE [Suspect]
     Active Substance: RITUXIMAB-PVVR
     Indication: RHEUMATOID ARTHRITIS
     Dosage: 1000 MG ON DAY 1 AND 15, NOT YET STARTED
     Route: 042

REACTIONS (2)
  - Off label use [Unknown]
  - Intentional product use issue [Unknown]
